FAERS Safety Report 7231344-6 (Version None)
Quarter: 2011Q1

REPORT INFORMATION
  Report Type: 
  Country: None (occurrence: None)
  Receive Date: 20110118
  Receipt Date: 20110105
  Transmission Date: 20110831
  Serious: Yes (Other)
  Sender: FDA-Public Use
  Company Number: US-BAYER-2011-002832

PATIENT
  Sex: Female

DRUGS (10)
  1. PROHANCE [Suspect]
     Indication: ANGIOGRAM
  2. MAGNEVIST [Suspect]
     Indication: ANGIOGRAM
  3. MULTIHANCE [Suspect]
     Indication: NUCLEAR MAGNETIC RESONANCE IMAGING
  4. OMNISCAN [Suspect]
     Indication: NUCLEAR MAGNETIC RESONANCE IMAGING
  5. MAGNEVIST [Suspect]
     Indication: NUCLEAR MAGNETIC RESONANCE IMAGING
  6. OPTIMARK [Suspect]
     Indication: NUCLEAR MAGNETIC RESONANCE IMAGING
  7. MULTIHANCE [Suspect]
     Indication: ANGIOGRAM
  8. PROHANCE [Suspect]
     Indication: NUCLEAR MAGNETIC RESONANCE IMAGING
  9. OMNISCAN [Suspect]
     Indication: ANGIOGRAM
  10. OPTIMARK [Suspect]
     Indication: ANGIOGRAM

REACTIONS (2)
  - PAIN [None]
  - NEPHROGENIC SYSTEMIC FIBROSIS [None]
